FAERS Safety Report 15030967 (Version 1)
Quarter: 2018Q2

REPORT INFORMATION
  Report Type: Spontaneous
  Country: CN (occurrence: CN)
  Receive Date: 20180619
  Receipt Date: 20180619
  Transmission Date: 20180711
  Serious: Yes (Hospitalization)
  Sender: FDA-Public Use
  Company Number: CN-ELI_LILLY_AND_COMPANY-CN201806004433

PATIENT
  Age: 62 Year
  Sex: Female
  Weight: 61 kg

DRUGS (1)
  1. HUMULIN 70/30 [Suspect]
     Active Substance: INSULIN HUMAN
     Indication: TYPE 2 DIABETES MELLITUS
     Dosage: 20 IU, BID, MORNING AND NIGHT
     Route: 058
     Dates: start: 2007

REACTIONS (6)
  - Cataract [Unknown]
  - Osteoarthritis [Unknown]
  - Body height decreased [Unknown]
  - Blood glucose increased [Recovering/Resolving]
  - Maculopathy [Unknown]
  - Arteriosclerotic retinopathy [Unknown]

NARRATIVE: CASE EVENT DATE: 2014
